FAERS Safety Report 8505636 (Version 2)
Quarter: 2013Q1

REPORT INFORMATION
  Report Type: Spontaneous
  Country: GB (occurrence: GB)
  Receive Date: 20120412
  Receipt Date: 20130320
  Transmission Date: 20140127
  Serious: Yes (Life-Threatening, Other)
  Sender: FDA-Public Use
  Company Number: GB-SANOFI-AVENTIS-2012SA023155

PATIENT
  Age: 26 Year
  Sex: Female
  Weight: 59 kg

DRUGS (4)
  1. METHOTREXATE [Suspect]
     Indication: RHEUMATOID ARTHRITIS
     Route: 065
  2. HYDROXYCHLOROQUINE SULFATE [Suspect]
     Indication: RHEUMATOID ARTHRITIS
     Route: 065
  3. FOLIC ACID [Concomitant]
  4. GOLIMUMAB [Concomitant]
     Indication: RHEUMATOID ARTHRITIS
     Dosage: TWO DOSES

REACTIONS (9)
  - Portal hypertension [Unknown]
  - Hepatic function abnormal [Recovered/Resolved]
  - Hepatic cirrhosis [Unknown]
  - Oesophageal varices haemorrhage [Recovered/Resolved]
  - Haematemesis [Unknown]
  - Hypovolaemic shock [Unknown]
  - Ascites [Unknown]
  - Abdominal pain [Unknown]
  - Anaemia [Unknown]
